FAERS Safety Report 23730385 (Version 1)
Quarter: 2024Q2

REPORT INFORMATION
  Report Type: Spontaneous
  Country: MA (occurrence: MA)
  Receive Date: 20240411
  Receipt Date: 20240411
  Transmission Date: 20240716
  Serious: Yes (Death, Life-Threatening, Hospitalization, Other)
  Sender: FDA-Public Use
  Company Number: MA-MLMSERVICE-20240325-4906011-1

PATIENT
  Age: 75 Year
  Sex: Male

DRUGS (1)
  1. METHOTREXATE [Suspect]
     Active Substance: METHOTREXATE
     Indication: Rheumatoid arthritis

REACTIONS (6)
  - Condition aggravated [Fatal]
  - Respiratory failure [Fatal]
  - Cardiac failure acute [Fatal]
  - Bundle branch block [Fatal]
  - Rheumatoid arthritis-associated interstitial lung disease [Fatal]
  - Pulmonary hypertension [Fatal]
